FAERS Safety Report 7933322-8 (Version None)
Quarter: 2011Q4

REPORT INFORMATION
  Report Type: 
  Country: None (occurrence: None)
  Receive Date: 20111118
  Receipt Date: 20111108
  Transmission Date: 20120403
  Serious: Yes (Life-Threatening, Hospitalization, Disabling)
  Sender: FDA-Public Use
  Company Number: 2005AL001206

PATIENT
  Age: 6 Year
  Sex: Male
  Weight: 40.8 kg

DRUGS (5)
  1. IBUPROFEN [Suspect]
     Indication: PYREXIA
     Dosage: 150 MG;Q6H;PO
     Route: 048
     Dates: start: 20030305, end: 20030306
  2. TOBREX [Concomitant]
  3. PANHIST DM SYRUP [Concomitant]
  4. MOTRIN [Suspect]
     Indication: PYREXIA
     Dates: start: 20030227
  5. ZITHROMAX [Concomitant]

REACTIONS (30)
  - TOXICITY TO VARIOUS AGENTS [None]
  - BRONCHITIS [None]
  - ASTHMA [None]
  - EYE IRRITATION [None]
  - KERATITIS [None]
  - CONSTIPATION [None]
  - EAR HAEMORRHAGE [None]
  - STEVENS-JOHNSON SYNDROME [None]
  - WHITE BLOOD CELL DISORDER [None]
  - HYPERSENSITIVITY [None]
  - PAIN [None]
  - RESPIRATORY FAILURE [None]
  - CONJUNCTIVITIS BACTERIAL [None]
  - UPPER RESPIRATORY TRACT INFECTION [None]
  - TRICHIASIS [None]
  - LUNG TRANSPLANT [None]
  - DISCOMFORT [None]
  - DERMATITIS BULLOUS [None]
  - HEART RATE INCREASED [None]
  - RESPIRATORY DISTRESS [None]
  - BLOOD PRESSURE INCREASED [None]
  - CORNEAL OPACITY [None]
  - BLEPHARITIS [None]
  - BLINDNESS [None]
  - OBLITERATIVE BRONCHIOLITIS [None]
  - DISEASE COMPLICATION [None]
  - RHINITIS ALLERGIC [None]
  - CONJUNCTIVAL SCAR [None]
  - OCULAR HYPERAEMIA [None]
  - CORNEAL DISORDER [None]
